FAERS Safety Report 8283127-6 (Version None)
Quarter: 2012Q2

REPORT INFORMATION
  Report Type: 
  Country: None (occurrence: None)
  Receive Date: 20120413
  Receipt Date: 20120411
  Transmission Date: 20120825
  Serious: Yes (Other)
  Sender: FDA-Public Use
  Company Number: US-GLAXOSMITHKLINE-A0968221A

PATIENT
  Age: 50 Year
  Sex: Male

DRUGS (9)
  1. SINGULAIR [Concomitant]
  2. NORVASC [Concomitant]
  3. ALLEGRA [Concomitant]
  4. ADVAIR DISKUS 100/50 [Suspect]
     Indication: ASTHMA
     Dosage: 1PUFF TWICE PER DAY
     Route: 055
  5. DIOVAN [Concomitant]
  6. NEXIUM [Concomitant]
  7. VICTOZA [Concomitant]
  8. ZYRTEC [Concomitant]
  9. NASONEX [Concomitant]

REACTIONS (2)
  - ASTHMA [None]
  - PRODUCT QUALITY ISSUE [None]
